FAERS Safety Report 13445828 (Version 2)
Quarter: 2017Q3

REPORT INFORMATION
  Report Type: Spontaneous
  Country: FR (occurrence: FR)
  Receive Date: 20170417
  Receipt Date: 20170811
  Transmission Date: 20171127
  Serious: Yes (Other)
  Sender: FDA-Public Use
  Company Number: FR-ROCHE-1920699

PATIENT
  Age: 16 Year
  Sex: Female

DRUGS (19)
  1. ROCEPHINE [Suspect]
     Active Substance: CEFTRIAXONE SODIUM
     Indication: PSEUDOMONAS INFECTION
     Route: 042
     Dates: start: 20170315, end: 20170323
  2. EVEROLIMUS [Concomitant]
     Active Substance: EVEROLIMUS
     Route: 065
  3. CIPROFLOXACINE [Concomitant]
     Active Substance: CIPROFLOXACIN
     Route: 065
  4. COLIMYCINE (FRANCE) [Concomitant]
     Dosage: 3 TIMES PER DAY AS AEROSOL
     Route: 065
  5. INEXIUM [Concomitant]
     Active Substance: ESOMEPRAZOLE
     Route: 065
  6. PROGRAF [Concomitant]
     Active Substance: TACROLIMUS\TACROLIMUS ANHYDROUS
     Route: 065
  7. TOCOPHEROL [Concomitant]
     Active Substance: TOCOPHEROL
     Dosage: IN THE MORNING
     Route: 065
  8. CEFEPIME [Concomitant]
     Active Substance: CEFEPIME HYDROCHLORIDE
     Route: 065
  9. BACTRIM [Suspect]
     Active Substance: SULFAMETHOXAZOLE\TRIMETHOPRIM
     Indication: PSEUDOMONAS INFECTION
     Dosage: LONG-TERM TREATMENT
     Route: 048
     Dates: end: 20170403
  10. MELATONIN [Concomitant]
     Active Substance: MELATONIN
     Dosage: IN THE EVENING
     Route: 065
  11. PIPERACILLIN AND TAZOBACTAM [Suspect]
     Active Substance: PIPERACILLIN SODIUM\TAZOBACTAM SODIUM
     Indication: PSEUDOMONAS INFECTION
     Route: 042
     Dates: start: 20170325, end: 20170403
  12. PRAVASTATIN. [Concomitant]
     Active Substance: PRAVASTATIN
     Route: 065
  13. MACROGOL [Concomitant]
     Active Substance: POLYETHYLENE GLYCOLS
     Dosage: IF NEEDED
     Route: 065
  14. AZITHROMYCINE [Concomitant]
     Active Substance: AZITHROMYCIN DIHYDRATE
     Route: 065
  15. FLAGYL [Suspect]
     Active Substance: METRONIDAZOLE\METRONIDAZOLE HYDROCHLORIDE
     Indication: PSEUDOMONAS INFECTION
     Route: 048
     Dates: start: 20170315, end: 20170323
  16. CALCIDOSE (FRANCE) [Concomitant]
     Active Substance: CALCIUM CARBONATE
     Dosage: 2 SACHETS 3 TIMES PER DAY
     Route: 065
  17. TIXOCORTOL [Concomitant]
     Active Substance: TIXOCORTOL PIVALATE
     Dosage: ONE NASAL SPRAY MORNING AND EVENING
     Route: 065
  18. TAZOCILLINE [Concomitant]
     Active Substance: PIPERACILLIN SODIUM\TAZOBACTAM SODIUM
     Dosage: PER DAY IVSE
     Route: 065
  19. EUROBIOL [Concomitant]
     Dosage: 25000 UNITS BEFORE MEALS
     Route: 065

REACTIONS (2)
  - Neutropenia [Recovered/Resolved]
  - Pancytopenia [Recovering/Resolving]

NARRATIVE: CASE EVENT DATE: 20170321
